FAERS Safety Report 5089019-8 (Version None)
Quarter: 2006Q3

REPORT INFORMATION
  Report Type: 
  Country: None (occurrence: None)
  Receive Date: 20060825
  Receipt Date: 20060821
  Transmission Date: 20061208
  Serious: Yes (Life-Threatening, Hospitalization, Other)
  Sender: FDA-Public Use
  Company Number: 2006GB01478

PATIENT
  Age: 86 Year
  Sex: Female
  Weight: 49 kg

DRUGS (6)
  1. ATENOLOL [Suspect]
     Route: 048
     Dates: start: 20060524, end: 20060706
  2. LANSOPRAZOLE [Suspect]
     Route: 048
     Dates: start: 20060524, end: 20060706
  3. NITROFURANTOIN [Suspect]
     Route: 048
     Dates: start: 20060524, end: 20060529
  4. TRIMETHOPRIM [Suspect]
     Route: 048
     Dates: start: 20060511, end: 20060516
  5. ASPIRIN [Concomitant]
     Route: 048
     Dates: start: 20060524
  6. CLOPIDOGREL [Concomitant]
     Route: 048
     Dates: start: 20060524

REACTIONS (1)
  - NEUTROPENIA [None]
